FAERS Safety Report 20090821 (Version 2)
Quarter: 2021Q4

REPORT INFORMATION
  Report Type: Spontaneous
  Country: US (occurrence: US)
  Receive Date: 20211119
  Receipt Date: 20211203
  Transmission Date: 20220303
  Serious: Yes (Other)
  Sender: FDA-Public Use
  Company Number: US-GILEAD-2021-0557007

PATIENT
  Age: 71 Year
  Sex: Male
  Weight: 83.8 kg

DRUGS (1)
  1. YESCARTA [Suspect]
     Active Substance: AXICABTAGENE CILOLEUCEL
     Indication: Follicular lymphoma
     Dosage: UNK
     Route: 042
     Dates: start: 20210928, end: 20210928

REACTIONS (4)
  - Alanine aminotransferase abnormal [Unknown]
  - Aspartate aminotransferase increased [Unknown]
  - Cytokine release syndrome [Unknown]
  - Fatigue [Unknown]

NARRATIVE: CASE EVENT DATE: 20211005
